FAERS Safety Report 25475272 (Version 1)
Quarter: 2025Q2

REPORT INFORMATION
  Report Type: Spontaneous
  Country: CA (occurrence: CA)
  Receive Date: 20250624
  Receipt Date: 20250624
  Transmission Date: 20250717
  Serious: Yes (Death, Hospitalization, Other)
  Sender: B. BRAUN MEDICAL INC.
  Company Number: None

PATIENT
  Age: 45 Year
  Sex: Female
  Weight: 47 kg

DRUGS (33)
  1. HEPARIN SODIUM [Suspect]
     Active Substance: HEPARIN SODIUM
     Indication: Thrombosis prophylaxis
     Dosage: 40.0 UNITS ONCE EVERY 24 HOURS
  2. FRAGMIN [Suspect]
     Active Substance: DALTEPARIN SODIUM
     Dosage: 5000.0 UNITS ONCE EVERY 24 HOURS FOR THROMBOSIS PROPHYLAXIS X3 DAYS.
  3. HYDROCHLOROTHIAZIDE [Concomitant]
     Active Substance: HYDROCHLOROTHIAZIDE
  4. CORTISOL MANAGER [Concomitant]
     Dosage: 1 EVERY 24 HOURS? ?THROMBOSIS?PROPHYLAXIS
  5. ACETAMINOPHEN [Concomitant]
     Active Substance: ACETAMINOPHEN
  6. ACYCLOVIR [Concomitant]
     Active Substance: ACYCLOVIR
  7. AMLODIPINE [Concomitant]
     Active Substance: AMLODIPINE BESYLATE
  8. AZITHROMYCIN [Concomitant]
     Active Substance: AZITHROMYCIN
  9. CRESEMBA [Concomitant]
     Active Substance: ISAVUCONAZONIUM SULFATE
  10. DICYCLOMINE HYDROCHLORIDE USP [Concomitant]
  11. DULOXETINE HYDROCHLORIDE [Concomitant]
     Active Substance: DULOXETINE HYDROCHLORIDE
  12. EPINEPHRINE [Concomitant]
     Active Substance: EPINEPHRINE
  13. FAMOTIDINE [Concomitant]
     Active Substance: FAMOTIDINE
  14. FUROSEMIDE [Concomitant]
     Active Substance: FUROSEMIDE
  15. GABAPENTIN [Concomitant]
     Active Substance: GABAPENTIN
  16. LORAZEPAM [Concomitant]
     Active Substance: LORAZEPAM
  17. MAGNESIUM OXIDE [Concomitant]
     Active Substance: MAGNESIUM OXIDE
  18. MEROPENEM [Concomitant]
     Active Substance: MEROPENEM
  19. METHYLPREDNISOLONE [Concomitant]
     Active Substance: METHYLPREDNISOLONE
  20. METOLAZONE [Concomitant]
     Active Substance: METOLAZONE
  21. MILRINONE INJECTION [Concomitant]
  22. MORPHINE [Concomitant]
     Active Substance: MORPHINE
  23. OLANZAPINE [Concomitant]
     Active Substance: OLANZAPINE
  24. PANTOPRAZOLE [Concomitant]
     Active Substance: PANTOPRAZOLE
  25. PHOSPHORUS [Concomitant]
     Active Substance: PHOSPHORUS
  26. POTASSIUM CHLORIDE [Concomitant]
     Active Substance: POTASSIUM CHLORIDE
  27. PREDNISONE [Concomitant]
     Active Substance: PREDNISONE
  28. SUCRALFATE [Concomitant]
     Active Substance: SUCRALFATE
  29. TACROLIMUS [Concomitant]
     Active Substance: TACROLIMUS
  30. URSODIOL [Concomitant]
     Active Substance: URSODIOL
  31. VALACYCLOVIR [Concomitant]
     Active Substance: VALACYCLOVIR HYDROCHLORIDE
  32. VITAMIN C [Concomitant]
     Active Substance: ASCORBIC ACID
  33. FILGRASTIM [Concomitant]
     Active Substance: FILGRASTIM

REACTIONS (3)
  - Upper gastrointestinal haemorrhage [Fatal]
  - Ulcer [Fatal]
  - Graft versus host disease [Fatal]
